FAERS Safety Report 7617776-2 (Version None)
Quarter: 2011Q3

REPORT INFORMATION
  Report Type: 
  Country: None (occurrence: None)
  Receive Date: 20110718
  Receipt Date: 20110711
  Transmission Date: 20111222
  Serious: Yes (Hospitalization)
  Sender: FDA-Public Use
  Company Number: US-BAYER-2011-059749

PATIENT
  Age: 61 Year
  Sex: Male

DRUGS (2)
  1. SORAFENIB (RAF KINASE INHIBITOR) [Suspect]
     Indication: RENAL CELL CARCINOMA
     Dosage: 400 MG, BID (2 AM AND 2 PM)
     Route: 048
     Dates: start: 20110621
  2. ANTIHYPERTENSIVES [Concomitant]

REACTIONS (9)
  - ABASIA [None]
  - PETECHIAE [None]
  - HYPERTENSION [None]
  - THROMBOSIS [None]
  - SPINAL CORD COMPRESSION [None]
  - GAIT DISTURBANCE [None]
  - BLOOD GLUCOSE INCREASED [None]
  - BLOOD POTASSIUM INCREASED [None]
  - PAIN OF SKIN [None]
